FAERS Safety Report 20704587 (Version 1)
Quarter: 2022Q2

REPORT INFORMATION
  Report Type: Spontaneous
  Country: FR (occurrence: FR)
  Receive Date: 20220413
  Receipt Date: 20220413
  Transmission Date: 20220721
  Serious: Yes (Hospitalization)
  Sender: FDA-Public Use
  Company Number: None

PATIENT
  Age: 26 Year
  Sex: Female

DRUGS (1)
  1. ACETAMINOPHEN [Suspect]
     Active Substance: ACETAMINOPHEN
     Indication: Product used for unknown indication
     Dosage: 9 TABS OF 1 G IN ONE DOSE   QD
     Route: 048
     Dates: start: 20210316, end: 20210316

REACTIONS (8)
  - Chest pain [Recovered/Resolved]
  - Prothrombin time shortened [Recovered/Resolved]
  - Coagulation factor VII level decreased [Recovered/Resolved]
  - Coagulation factor X level decreased [Recovered/Resolved]
  - Vomiting [Recovered/Resolved]
  - Abdominal pain [Recovered/Resolved]
  - Nausea [Recovered/Resolved]
  - Toxicity to various agents [Unknown]

NARRATIVE: CASE EVENT DATE: 20210316
